FAERS Safety Report 6720172-3 (Version None)
Quarter: 2010Q2

REPORT INFORMATION
  Report Type: 
  Country: None (occurrence: None)
  Receive Date: 20100507
  Receipt Date: 20100507
  Transmission Date: 20101027
  Serious: Yes (Other)
  Sender: FDA-Public Use
  Company Number: A-CH2010-36043

PATIENT
  Age: 61 Year
  Sex: Female

DRUGS (1)
  1. TRACLEER [Suspect]
     Indication: PULMONARY ARTERIAL HYPERTENSION
     Dosage: 125 MG, BID, ORAL, 62.5 MG, BID, ORAL
     Route: 048
     Dates: start: 20070301

REACTIONS (8)
  - DILATATION VENTRICULAR [None]
  - DISEASE PROGRESSION [None]
  - DRUG INEFFECTIVE [None]
  - PERICARDIAL HAEMORRHAGE [None]
  - PULMONARY ARTERIAL HYPERTENSION [None]
  - PULMONARY ARTERIAL PRESSURE INCREASED [None]
  - RIGHT ATRIAL DILATATION [None]
  - RIGHT VENTRICULAR FAILURE [None]
